FAERS Safety Report 18577156 (Version 1)
Quarter: 2020Q4

REPORT INFORMATION
  Report Type: Spontaneous
  Country: JP (occurrence: JP)
  Receive Date: 20201203
  Receipt Date: 20201203
  Transmission Date: 20210114
  Serious: Yes (Other)
  Sender: FDA-Public Use
  Company Number: JP-009507513-2011JPN003641J

PATIENT
  Age: 66 Year
  Sex: Male

DRUGS (4)
  1. GANCICLOVIR. [Concomitant]
     Active Substance: GANCICLOVIR
     Indication: CYTOMEGALOVIRUS INFECTION
     Dosage: 160-300MG/DAY
     Route: 042
  2. TACROLIMUS HYDRATE [Interacting]
     Active Substance: TACROLIMUS
     Dosage: 0.5-2.0MG/DAY
     Route: 048
  3. PREVYMIS [Suspect]
     Active Substance: LETERMOVIR
     Indication: CYTOMEGALOVIRUS INFECTION
     Dosage: 480 MG/DAY
     Route: 048
  4. TACROLIMUS HYDRATE [Interacting]
     Active Substance: TACROLIMUS
     Indication: CYTOMEGALOVIRUS INFECTION
     Dosage: 2.0-4.0MG/DAY
     Route: 048

REACTIONS (4)
  - Drug level increased [Unknown]
  - Renal impairment [Unknown]
  - Drug interaction [Unknown]
  - Blood creatinine increased [Unknown]
